FAERS Safety Report 25216983 (Version 4)
Quarter: 2025Q2

REPORT INFORMATION
  Report Type: Spontaneous
  Country: DE (occurrence: DE)
  Receive Date: 20250419
  Receipt Date: 20250605
  Transmission Date: 20250716
  Serious: Yes (Hospitalization, Other)
  Sender: AUROBINDO
  Company Number: DE-MLMSERVICE-20250331-PI458513-00190-1

PATIENT
  Age: 46 Year
  Sex: Male

DRUGS (7)
  1. LEVETIRACETAM [Suspect]
     Active Substance: LEVETIRACETAM
     Indication: Generalised tonic-clonic seizure
     Dosage: 500 MILLIGRAM, TWO TIMES A DAY
     Route: 065
  2. LAMOTRIGINE [Interacting]
     Active Substance: LAMOTRIGINE
     Indication: Idiopathic generalised epilepsy
     Dosage: 100 MILLIGRAM, ONCE A DAY, TARGET DOSE OF TWICE 100 MG WAS REACHED
     Route: 065
     Dates: end: 2017
  3. LAMOTRIGINE [Interacting]
     Active Substance: LAMOTRIGINE
     Indication: Epilepsy
     Dosage: 350 MILLIGRAM, ONCE A DAY, INCREASED
     Route: 065
     Dates: start: 2019
  4. LAMOTRIGINE [Interacting]
     Active Substance: LAMOTRIGINE
     Dosage: 150 MILLIGRAM, TWO TIMES A DAY (150 - 0- 150 MG)
     Route: 065
     Dates: start: 2017, end: 2024
  5. LAMOTRIGINE [Interacting]
     Active Substance: LAMOTRIGINE
     Dosage: 350 MILLIGRAM, ONCE A DAY, INCREASED
     Route: 065
     Dates: start: 2024, end: 2024
  6. METAMIZOLE [Interacting]
     Active Substance: METAMIZOLE
     Indication: Procedural pain
     Dosage: 1000 MILLIGRAM, 3 TIMES A DAY (1000-1000-1000 MG FOR 1 WEEK)
     Route: 065
     Dates: start: 2024, end: 2024
  7. DIPYRONE [Interacting]
     Active Substance: DIPYRONE
     Indication: Procedural pain
     Route: 065

REACTIONS (5)
  - Tongue injury [Unknown]
  - Postictal state [Recovered/Resolved]
  - Generalised tonic-clonic seizure [Recovered/Resolved]
  - Drug interaction [Recovered/Resolved]
  - Drug ineffective [Unknown]

NARRATIVE: CASE EVENT DATE: 20240101
